FAERS Safety Report 11536181 (Version 3)
Quarter: 2015Q4

REPORT INFORMATION
  Report Type: Spontaneous
  Country: US (occurrence: US)
  Receive Date: 20150922
  Receipt Date: 20151028
  Transmission Date: 20160304
  Serious: Yes (Other)
  Sender: FDA-Public Use
  Company Number: US-GLAXOSMITHKLINE INC.-US2015GSK134879

PATIENT
  Age: 62 Year
  Sex: Female

DRUGS (2)
  1. TANZEUM [Suspect]
     Active Substance: ALBIGLUTIDE
     Indication: DIABETES MELLITUS
     Dosage: 30 MG, U
     Route: 042
     Dates: start: 201502
  2. TANZEUM [Suspect]
     Active Substance: ALBIGLUTIDE
     Indication: GLYCOSYLATED HAEMOGLOBIN DECREASED

REACTIONS (5)
  - Colon cancer [Unknown]
  - Surgery [Unknown]
  - Colon operation [Unknown]
  - Neoplasm malignant [Unknown]
  - Colonoscopy [Unknown]

NARRATIVE: CASE EVENT DATE: 20150622
